FAERS Safety Report 17610449 (Version 1)
Quarter: 2020Q1

REPORT INFORMATION
  Report Type: Spontaneous
  Country: US (occurrence: US)
  Receive Date: 20200330
  Receipt Date: 20200330
  Transmission Date: 20200409
  Serious: Yes (Hospitalization)
  Sender: FDA-Public Use
  Company Number: None

PATIENT
  Age: 86 Year
  Sex: Male

DRUGS (2)
  1. GLIPIZIDE (GLIPIZIDE 10MG TAB) [Suspect]
     Active Substance: GLIPIZIDE
     Indication: DIABETES MELLITUS
     Route: 048
     Dates: start: 20180725, end: 20200317
  2. INSULIN (INSULIN, GLARGINE, HUMAN 100UNT/ML INJ) [Suspect]
     Active Substance: INSULIN GLARGINE
     Indication: DIABETES MELLITUS
     Dosage: ?          OTHER STRENGTH:100 UNT/ML;?
     Route: 058
     Dates: start: 20180725, end: 20200317

REACTIONS (8)
  - Glycosylated haemoglobin increased [None]
  - Somnolence [None]
  - Radius fracture [None]
  - Hypoglycaemia [None]
  - Insulinoma [None]
  - Infection [None]
  - Depressed level of consciousness [None]
  - Hypophagia [None]

NARRATIVE: CASE EVENT DATE: 20200313
